FAERS Safety Report 6085042-5 (Version None)
Quarter: 2009Q1

REPORT INFORMATION
  Report Type: 
  Country: None (occurrence: None)
  Receive Date: 20090220
  Receipt Date: 20090210
  Transmission Date: 20090719
  Serious: Yes (Hospitalization, Other)
  Sender: FDA-Public Use
  Company Number: US-AMGEN-QUU332965

PATIENT
  Sex: Female

DRUGS (3)
  1. ENBREL [Suspect]
     Indication: RHEUMATOID ARTHRITIS
     Route: 058
     Dates: start: 20080101, end: 20080901
  2. LIPITOR [Concomitant]
  3. LOPRESSOR [Concomitant]

REACTIONS (4)
  - CHEST DISCOMFORT [None]
  - CONSTIPATION [None]
  - DYSURIA [None]
  - SEPSIS [None]
